FAERS Safety Report 21587551 (Version 1)
Quarter: 2022Q4

REPORT INFORMATION
  Report Type: Other
  Country: CN (occurrence: None)
  Receive Date: 20221114
  Receipt Date: 20221114
  Transmission Date: 20230113
  Serious: Yes (Other)
  Sender: FDA-Public Use
  Company Number: CN-ROCHE-3216978

PATIENT
  Age: 60 Year
  Sex: Female
  Weight: 66 kg

DRUGS (1)
  1. AVASTIN [Suspect]
     Active Substance: BEVACIZUMAB
     Indication: Non-small cell lung cancer
     Route: 041
     Dates: start: 20170521

REACTIONS (2)
  - Fall [Unknown]
  - Hip fracture [Unknown]
